FAERS Safety Report 6264182 (Version 11)
Quarter: 2014Q4

REPORT INFORMATION
  Report Type: Spontaneous
  Country: JP (occurrence: JP)
  Receive Date: 20070319
  Receipt Date: 20141227
  Transmission Date: 20150529
  Serious: Yes (Disabling, Other)
  Sender: FDA-Public Use
  Company Number: PHBS2006JP08595

PATIENT
  Age: 4 Month
  Sex: Male
  Weight: 7 kg

DRUGS (4)
  1. KETOTIFEN [Concomitant]
     Active Substance: KETOTIFEN
     Indication: PRODUCT USED FOR UNKNOWN INDICATION
     Route: 065
  2. ZADITEN [Suspect]
     Active Substance: KETOTIFEN FUMARATE
     Indication: DERMATITIS ATOPIC
     Dosage: 0.3 MG, QD
     Route: 048
     Dates: start: 20060512, end: 20060531
  3. MIYA-BM [Suspect]
     Active Substance: CLOSTRIDIUM BUTYRICUM SPORES STRAIN M-55
     Indication: PRODUCT USED FOR UNKNOWN INDICATION
     Route: 048
  4. ZADITEN [Suspect]
     Active Substance: KETOTIFEN FUMARATE
     Indication: PRURITUS
     Dosage: 1.5 MG, QD
     Route: 048
     Dates: start: 20060601, end: 20060605

REACTIONS (18)
  - Areflexia [Unknown]
  - Epilepsy [Unknown]
  - Drug dispensing error [Unknown]
  - Motor developmental delay [Not Recovered/Not Resolved]
  - Partial seizures [Unknown]
  - Overdose [Unknown]
  - Childhood disintegrative disorder [Unknown]
  - Diarrhoea [Unknown]
  - Toxic encephalopathy [Unknown]
  - Pyrexia [Recovering/Resolving]
  - Growth retardation [Unknown]
  - Mental retardation [Unknown]
  - Somnolence [Recovering/Resolving]
  - Agitation [Recovering/Resolving]
  - Speech disorder [Unknown]
  - Irritability [Unknown]
  - Tremor [Unknown]
  - Crying [Unknown]

NARRATIVE: CASE EVENT DATE: 20060601
